FAERS Safety Report 19420456 (Version 1)
Quarter: 2021Q2

REPORT INFORMATION
  Report Type: Spontaneous
  Country: AR (occurrence: AR)
  Receive Date: 20210615
  Receipt Date: 20210615
  Transmission Date: 20210717
  Serious: Yes (Other)
  Sender: FDA-Public Use
  Company Number: AR-FERRINGPH-2021FE03704

PATIENT
  Age: 56 Year
  Sex: Female

DRUGS (2)
  1. BISACODILO [Concomitant]
  2. PICOPREP [Suspect]
     Active Substance: ANHYDROUS CITRIC ACID\MAGNESIUM OXIDE\SODIUM PICOSULFATE
     Indication: PRODUCT USED FOR UNKNOWN INDICATION
     Dosage: UNK
     Route: 065
     Dates: start: 20210603

REACTIONS (4)
  - Eye inflammation [Unknown]
  - Syncope [Unknown]
  - Ocular hyperaemia [Unknown]
  - Periorbital haematoma [Unknown]
